FAERS Safety Report 4524639-8 (Version None)
Quarter: 2004Q4

REPORT INFORMATION
  Report Type: 
  Country: None (occurrence: None)
  Receive Date: 20041117
  Receipt Date: 20030814
  Transmission Date: 20050328
  Serious: Yes (Other)
  Sender: FDA-Public Use
  Company Number: C2003-2091.01

PATIENT
  Age: 27 Year
  Sex: Female

DRUGS (6)
  1. CLOZAPINE [Suspect]
     Dosage: 50 MG BID, ORAL
     Route: 048
     Dates: start: 20030625, end: 20030716
  2. CLOZAPINE [Suspect]
     Dosage: 100MG, BID, ORAL
     Route: 048
     Dates: start: 20030626, end: 20030716
  3. HALOPERIDOL [Concomitant]
  4. DIVALPROEX SODIUM [Concomitant]
  5. OMEPRAZOLE [Concomitant]
  6. TOPIRAMATE [Concomitant]

REACTIONS (1)
  - NEUTROPHIL COUNT DECREASED [None]
